FAERS Safety Report 17801139 (Version 1)
Quarter: 2020Q2

REPORT INFORMATION
  Report Type: Spontaneous
  Country: GB (occurrence: GB)
  Receive Date: 20200519
  Receipt Date: 20200519
  Transmission Date: 20200714
  Serious: Yes (Life-Threatening)
  Sender: FDA-Public Use
  Company Number: GB-ORION CORPORATION ORION PHARMA-20_00009090

PATIENT
  Age: 81 Year
  Sex: Female
  Weight: 47.2 kg

DRUGS (6)
  1. FOLIC ACID. [Concomitant]
     Active Substance: FOLIC ACID
     Route: 065
  2. FLUDROCORTISONE [Concomitant]
     Active Substance: FLUDROCORTISONE
     Route: 065
  3. PARACETAMOL [Concomitant]
     Active Substance: ACETAMINOPHEN
     Route: 065
  4. METHOTREXATE (TRADE NAME UNKNOWN) [Suspect]
     Active Substance: METHOTREXATE
     Indication: RHEUMATOID ARTHRITIS
     Dosage: PATIENT RECEIVED AT LEAST 3 X 40MG
     Route: 048
     Dates: start: 20200327, end: 20200427
  5. DONEPEZIL. [Concomitant]
     Active Substance: DONEPEZIL
     Route: 065
  6. HYDROXYCHLOROQUINE [Concomitant]
     Active Substance: HYDROXYCHLOROQUINE
     Route: 065

REACTIONS (8)
  - Oliguria [Unknown]
  - Sepsis [Unknown]
  - Overdose [Unknown]
  - Decreased activity [Unknown]
  - Hypophagia [Unknown]
  - Incorrect dose administered [Unknown]
  - Acute kidney injury [Unknown]
  - Pancytopenia [Not Recovered/Not Resolved]
